FAERS Safety Report 6961333-8 (Version None)
Quarter: 2010Q3

REPORT INFORMATION
  Report Type: 
  Country: None (occurrence: None)
  Receive Date: 20100901
  Receipt Date: 20100826
  Transmission Date: 20110219
  Serious: Yes (Other)
  Sender: FDA-Public Use
  Company Number: A0878705A

PATIENT
  Sex: Female

DRUGS (2)
  1. AVAMYS [Suspect]
     Indication: NASAL DISORDER
     Dates: start: 20100501
  2. DALMADORM [Concomitant]
     Indication: SLEEP DISORDER
     Dosage: .5TAB AT NIGHT

REACTIONS (2)
  - ANOSMIA [None]
  - HYPOSMIA [None]
